FAERS Safety Report 7528601-2 (Version None)
Quarter: 2011Q2

REPORT INFORMATION
  Report Type: 
  Country: None (occurrence: None)
  Receive Date: 20110607
  Receipt Date: 20040823
  Transmission Date: 20111010
  Serious: Yes (Death)
  Sender: FDA-Public Use
  Company Number: PHHO2004CA08886

PATIENT
  Sex: Male

DRUGS (2)
  1. PREDNISONE [Concomitant]
  2. CLOZARIL [Suspect]
     Dosage: 450 MG, AT BEDTIME
     Route: 048
     Dates: start: 20020108, end: 20040601

REACTIONS (1)
  - SYSTEMIC LUPUS ERYTHEMATOSUS [None]
